FAERS Safety Report 9165542 (Version 3)
Quarter: 2013Q2

REPORT INFORMATION
  Report Type: Spontaneous
  Country: BR (occurrence: BR)
  Receive Date: 20130315
  Receipt Date: 20130425
  Transmission Date: 20140414
  Serious: Yes (Hospitalization, Other)
  Sender: FDA-Public Use
  Company Number: BR-NOVOPROD-372934

PATIENT
  Age: 55 Year
  Sex: Female

DRUGS (5)
  1. VICTOZA [Suspect]
     Indication: TYPE 2 DIABETES MELLITUS
     Dosage: 0.6 MG, QD
     Route: 058
     Dates: start: 2012
  2. VICTOZA [Suspect]
     Dosage: 1.2 MG, QD
     Route: 058
     Dates: end: 2013
  3. LOSARTAN [Concomitant]
     Indication: HYPERTENSION
     Dosage: UNK
     Route: 065
  4. TRAMAL [Concomitant]
     Dosage: UNK
     Route: 065
  5. CALCIUM [Concomitant]
     Dosage: UNK
     Route: 065

REACTIONS (3)
  - Spinal column injury [Unknown]
  - Paralysis [Not Recovered/Not Resolved]
  - Cerebrovascular accident [Unknown]
